FAERS Safety Report 11346125 (Version 1)
Quarter: 2015Q3

REPORT INFORMATION
  Report Type: Spontaneous
  Country: US (occurrence: US)
  Receive Date: 20150803
  Receipt Date: 20150803
  Transmission Date: 20151125
  Serious: No
  Sender: FDA-Public Use
  Company Number: US-ELI_LILLY_AND_COMPANY-US201002002748

PATIENT
  Age: 14 Year

DRUGS (2)
  1. STRATTERA [Suspect]
     Active Substance: ATOMOXETINE HYDROCHLORIDE
     Indication: ATTENTION DEFICIT/HYPERACTIVITY DISORDER
     Dosage: 60 MG, DAILY (1/D)
     Route: 048
  2. GUANFACINE. [Concomitant]
     Active Substance: GUANFACINE
     Indication: ATTENTION DEFICIT/HYPERACTIVITY DISORDER
     Dosage: 1 MG, DAILY (1/D)
     Route: 048
     Dates: start: 20100107, end: 20100112

REACTIONS (4)
  - Malaise [Unknown]
  - Dry mouth [Unknown]
  - Drug interaction [Unknown]
  - Dysarthria [Unknown]

NARRATIVE: CASE EVENT DATE: 201001
